FAERS Safety Report 5179695-3 (Version None)
Quarter: 2006Q4

REPORT INFORMATION
  Report Type: 
  Country: None (occurrence: None)
  Receive Date: 20061211
  Receipt Date: 20061128
  Transmission Date: 20070319
  Serious: Yes (Other)
  Sender: FDA-Public Use
  Company Number: 2006148790

PATIENT
  Age: 83 Year
  Sex: Female
  Weight: 68.0396 kg

DRUGS (5)
  1. LIPITOR [Suspect]
     Indication: BLOOD CHOLESTEROL INCREASED
     Dosage: 10 MG (10 MG, 1 IN 1 D)
     Dates: start: 20060708, end: 20060822
  2. TRIAMTERENE (TRIAMTERENE) [Concomitant]
  3. OMEPRAZOLE [Concomitant]
  4. DITROPAN [Concomitant]
  5. VERAPAMIL [Concomitant]

REACTIONS (5)
  - ARTHRALGIA [None]
  - BLOOD CHOLESTEROL INCREASED [None]
  - MUSCULOSKELETAL PAIN [None]
  - OEDEMA PERIPHERAL [None]
  - PAIN IN EXTREMITY [None]
